FAERS Safety Report 8183527-9 (Version None)
Quarter: 2012Q1

REPORT INFORMATION
  Report Type: 
  Country: None (occurrence: None)
  Receive Date: 20120305
  Receipt Date: 20120222
  Transmission Date: 20120608
  Serious: Yes (Hospitalization, Other)
  Sender: FDA-Public Use
  Company Number: US-ELI_LILLY_AND_COMPANY-US201010000578

PATIENT
  Sex: Female

DRUGS (24)
  1. SYNTHROID [Concomitant]
  2. LOSARTAN POTASSIUM [Concomitant]
     Indication: BLOOD PRESSURE
     Dosage: 50 MG, UNK
  3. LOPERAMIDE HCL [Concomitant]
  4. FORTEO [Suspect]
     Dosage: 20 UG, QD
     Route: 065
     Dates: end: 20110501
  5. FORTEO [Suspect]
     Dosage: 20 UG, QD
     Route: 065
     Dates: end: 20111012
  6. FORTEO [Suspect]
     Indication: OSTEOPOROSIS
     Dosage: 20 UG, QD
     Route: 065
     Dates: start: 20100909, end: 20101020
  7. IMODIUM [Concomitant]
  8. OMEPRAZOLE [Concomitant]
  9. LOVAZA [Concomitant]
     Indication: BLOOD CHOLESTEROL
  10. ZETIA [Concomitant]
     Indication: BLOOD CHOLESTEROL
  11. FORTEO [Suspect]
     Dosage: 20 UG, QD
     Route: 065
  12. ISOPTIN [Concomitant]
  13. VERAPAMIL [Concomitant]
  14. SINGULAIR [Concomitant]
  15. SIMVASTATIN [Concomitant]
  16. WARFARIN SODIUM [Concomitant]
  17. TRICOR [Concomitant]
  18. ALBUTEROL [Concomitant]
  19. CLONAZEPAM [Concomitant]
  20. AMBIEN [Concomitant]
  21. ACETAMINOPHEN [Concomitant]
  22. ZOLPIDEM [Concomitant]
  23. DIURETICS [Concomitant]
  24. COUMADIN [Concomitant]

REACTIONS (17)
  - BREAST MASS [None]
  - HYPERTENSION [None]
  - GOUT [None]
  - BACK PAIN [None]
  - WEIGHT INCREASED [None]
  - INFLUENZA [None]
  - DIARRHOEA [None]
  - PNEUMONIA [None]
  - FEELING ABNORMAL [None]
  - ALOPECIA [None]
  - HYPOACUSIS [None]
  - INTESTINAL OBSTRUCTION [None]
  - JOINT SWELLING [None]
  - BREAST PAIN [None]
  - MUSCLE SPASMS [None]
  - DYSPNOEA [None]
  - FLUID RETENTION [None]
